FAERS Safety Report 23842963 (Version 2)
Quarter: 2024Q2

REPORT INFORMATION
  Report Type: Spontaneous
  Country: JP (occurrence: JP)
  Receive Date: 20240510
  Receipt Date: 20240527
  Transmission Date: 20240715
  Serious: Yes (Death, Hospitalization)
  Sender: FDA-Public Use
  Company Number: JP-TEVA-VS-3195688

PATIENT
  Age: 66 Year
  Sex: Male

DRUGS (6)
  1. CARBOPLATIN [Suspect]
     Active Substance: CARBOPLATIN
     Indication: Neuroendocrine carcinoma of prostate
     Dosage: RECEIVED ON DAY 1
     Route: 065
  2. BICALUTAMIDE [Suspect]
     Active Substance: BICALUTAMIDE
     Indication: Neuroendocrine carcinoma of prostate
     Dosage: RECEIVED FOR 4 MONTHS
     Route: 065
  3. ETOPOSIDE [Suspect]
     Active Substance: ETOPOSIDE
     Indication: Neuroendocrine carcinoma of prostate
     Dosage: DOSE: 80 MG/ML; RECEIVED ON DAY 1 TO 3
     Route: 065
  4. CABAZITAXEL [Suspect]
     Active Substance: CABAZITAXEL
     Indication: Neuroendocrine carcinoma of prostate
     Dosage: RECEIVED 1 CYCLE
     Route: 065
  5. DOCETAXEL [Suspect]
     Active Substance: DOCETAXEL\DOCETAXEL ANHYDROUS
     Indication: Neuroendocrine carcinoma of prostate
     Dosage: RECEIVED FOR 4 CYCLES
     Route: 065
  6. OLAPARIB [Suspect]
     Active Substance: OLAPARIB
     Indication: Neuroendocrine carcinoma of prostate
     Route: 065

REACTIONS (1)
  - Drug ineffective [Fatal]
